FAERS Safety Report 6318318-4 (Version None)
Quarter: 2009Q3

REPORT INFORMATION
  Report Type: 
  Country: None (occurrence: None)
  Receive Date: 20090821
  Receipt Date: 20090812
  Transmission Date: 20100115
  Serious: Yes (Other)
  Sender: FDA-Public Use
  Company Number: DE-PFIZER INC-2009224352

PATIENT
  Age: 73 Year

DRUGS (5)
  1. SORTIS [Suspect]
     Dosage: 20 MG/DAY
     Route: 048
     Dates: start: 20090302, end: 20090330
  2. PENTOXIFYLLINE [Concomitant]
  3. NOVONORM [Concomitant]
     Indication: DIABETES MELLITUS
  4. AVANDIA [Concomitant]
     Indication: DIABETES MELLITUS
  5. TAMSULOSIN [Concomitant]
     Indication: PROSTATIC DISORDER

REACTIONS (2)
  - MENIERE'S DISEASE [None]
  - SUDDEN HEARING LOSS [None]
